FAERS Safety Report 4289142-1 (Version None)
Quarter: 2004Q1

REPORT INFORMATION
  Report Type: 
  Country: None (occurrence: None)
  Receive Date: 20040210
  Receipt Date: 20040130
  Transmission Date: 20041129
  Serious: Yes (Hospitalization)
  Sender: FDA-Public Use
  Company Number: PHRM2004FR00710

PATIENT
  Age: 73 Year
  Sex: Female

DRUGS (5)
  1. TAREG [Suspect]
     Dosage: 40 MG, QD
     Route: 048
     Dates: start: 20030315, end: 20030903
  2. ACTONEL [Suspect]
     Dosage: 35 MG, QW
     Route: 048
     Dates: start: 20030315, end: 20030903
  3. COLCHICINE ^HOUDE^ [Concomitant]
     Route: 048
     Dates: start: 20030901, end: 20030903
  4. ISKEDYL [Concomitant]
     Dosage: 1 DF, QD
     Route: 048
  5. TEGRETOL [Concomitant]
     Dosage: 2 DF, DAILY
     Route: 048
     Dates: start: 20030315

REACTIONS (5)
  - BILIARY DILATATION [None]
  - CHONDROCALCINOSIS [None]
  - HEPATIC ENZYME INCREASED [None]
  - HEPATITIS [None]
  - HILAR LYMPHADENOPATHY [None]
